FAERS Safety Report 9412833 (Version 2)
Quarter: 2013Q4

REPORT INFORMATION
  Report Type: Spontaneous
  Country: GB (occurrence: GB)
  Receive Date: 20130722
  Receipt Date: 20131104
  Transmission Date: 20140711
  Serious: Yes (Other)
  Sender: FDA-Public Use
  Company Number: PHHY2013GB075585

PATIENT
  Age: 70 Year
  Sex: Male
  Weight: 80 kg

DRUGS (8)
  1. RAMIPRIL [Suspect]
     Indication: HYPERTENSION
     Dosage: 1.25 MG, QD
     Route: 048
     Dates: start: 20120803, end: 20130628
  2. RAMIPRIL [Suspect]
     Dosage: 2.5 MG, UNK
     Dates: start: 20130503
  3. OMEPRAZOLE [Suspect]
     Dosage: 20 MG, BID
     Route: 048
     Dates: start: 20121214
  4. OMEPRAZOLE [Suspect]
     Dosage: 1 DF, QD (STARTED AS TWO DAILY, REDUCED TO ONE DAILY FROM 28 JUN 2013)
     Dates: start: 20130628
  5. BISOPROLOL [Concomitant]
     Indication: ATRIAL FIBRILLATION
     Dosage: 1.25 MG
     Route: 048
     Dates: start: 20120803
  6. BISOPROLOL [Concomitant]
     Dosage: NOT STOPPED
     Route: 048
     Dates: start: 20120803
  7. ASPIRIN [Concomitant]
     Dosage: 75 MG, QD
     Route: 048
     Dates: start: 20120716
  8. MONTELUKAST [Concomitant]

REACTIONS (4)
  - Facial pain [Recovering/Resolving]
  - Skin exfoliation [Not Recovered/Not Resolved]
  - Erythema [Recovering/Resolving]
  - Swelling face [Recovering/Resolving]
